FAERS Safety Report 9908035 (Version 1)
Quarter: 2014Q1

REPORT INFORMATION
  Report Type: Spontaneous
  Country: US (occurrence: None)
  Receive Date: 20140214
  Receipt Date: 20140214
  Transmission Date: 20141002
  Serious: Yes (Other)
  Sender: FDA-Public Use
  Company Number: None

PATIENT
  Age: 56 Year
  Sex: Male

DRUGS (6)
  1. CLOZAPINE [Suspect]
  2. LEVOTHYROXINE [Concomitant]
  3. GLIPIZIDE [Concomitant]
  4. OMEPRAZOLE [Concomitant]
  5. DEPAKOTE [Concomitant]
  6. LITHIUM [Concomitant]

REACTIONS (2)
  - Hypotension [None]
  - Pyrexia [None]
